FAERS Safety Report 6955887-5 (Version None)
Quarter: 2010Q3

REPORT INFORMATION
  Report Type: 
  Country: None (occurrence: None)
  Receive Date: 20100826
  Receipt Date: 20100826
  Transmission Date: 20110219
  Serious: Yes (Other)
  Sender: FDA-Public Use
  Company Number: None

PATIENT
  Age: 39 Year
  Sex: Female
  Weight: 117.9352 kg

DRUGS (1)
  1. GLIMEPIRIDE [Suspect]
     Indication: DIABETES MELLITUS
     Dosage: 4MG 2/DAILY PO
     Route: 048
     Dates: start: 20100521, end: 20100818

REACTIONS (14)
  - ABDOMINAL DISCOMFORT [None]
  - ANORECTAL DISORDER [None]
  - ANXIETY [None]
  - CONSTIPATION [None]
  - CRYING [None]
  - DIARRHOEA [None]
  - DYSPEPSIA [None]
  - GASTROINTESTINAL PAIN [None]
  - IRRITABILITY [None]
  - PROCTALGIA [None]
  - RECTAL PROLAPSE [None]
  - SENSATION OF FOREIGN BODY [None]
  - SWELLING [None]
  - THERAPEUTIC RESPONSE UNEXPECTED [None]
